FAERS Safety Report 6572671-5 (Version None)
Quarter: 2010Q1

REPORT INFORMATION
  Report Type: 
  Country: None (occurrence: None)
  Receive Date: 20100205
  Receipt Date: 20100201
  Transmission Date: 20100710
  Serious: Yes (Other)
  Sender: FDA-Public Use
  Company Number: GB-JNJCH-2009021775

PATIENT
  Sex: Male

DRUGS (6)
  1. LISTERINE ANTISEPTIC MOUTHWASH [Suspect]
     Indication: DRUG USE FOR UNKNOWN INDICATION
     Dosage: TEXT:AS DIRECTED DAILY
     Route: 048
  2. LISTERINE STAY WHITE [Suspect]
     Indication: DENTAL DISORDER PROPHYLAXIS
     Dosage: TEXT:AS DIRECTED DAILY
     Route: 048
     Dates: start: 20090420, end: 20090424
  3. LISTERINE TOTAL CARE [Suspect]
     Indication: DENTAL DISORDER PROPHYLAXIS
     Dosage: TEXT:AS DIRECTED DAILY
     Route: 048
     Dates: start: 20090420, end: 20090424
  4. RAMIPRIL [Concomitant]
     Indication: HYPOTENSION
     Dosage: TEXT:UNSPECIFIED
     Route: 048
  5. APROVEL [Concomitant]
     Indication: BLOOD PRESSURE
     Dosage: TEXT:75 MC
     Route: 065
  6. TERBINAFINE [Concomitant]
     Indication: FUNGAL INFECTION
     Dosage: TEXT:UNKNOWN
     Route: 065

REACTIONS (4)
  - AGEUSIA [None]
  - TONGUE COATED [None]
  - TONGUE DISCOLOURATION [None]
  - TONGUE DISORDER [None]
